FAERS Safety Report 5754087-4 (Version None)
Quarter: 2008Q2

REPORT INFORMATION
  Report Type: 
  Country: None (occurrence: None)
  Receive Date: 20080527
  Receipt Date: 20080527
  Transmission Date: 20081010
  Serious: Yes (Other)
  Sender: FDA-Public Use
  Company Number: None

PATIENT
  Age: 44 Year
  Sex: Male
  Weight: 83.9154 kg

DRUGS (1)
  1. ICY HOT STICK EXTRA STRENGTH CHATTEM [Suspect]
     Indication: MYALGIA
     Dosage: RUB ON ONCE TOP APPLIED ONCE
     Route: 061
     Dates: start: 20080517

REACTIONS (6)
  - APPLICATION SITE BURN [None]
  - BLISTER [None]
  - BURNING SENSATION [None]
  - MYALGIA [None]
  - SCAB [None]
  - THERMAL BURN [None]
